FAERS Safety Report 11867943 (Version 2)
Quarter: 2016Q4

REPORT INFORMATION
  Report Type: Spontaneous
  Country: DK (occurrence: DK)
  Receive Date: 20151224
  Receipt Date: 20161103
  Transmission Date: 20170206
  Serious: Yes (Other)
  Sender: FDA-Public Use
  Company Number: PHHY2015DK164844

PATIENT
  Age: 34 Year
  Sex: Female
  Weight: 60 kg

DRUGS (1)
  1. VIBRADOX [Suspect]
     Active Substance: DOXYCYCLINE
     Indication: PELVIC INFECTION
     Dosage: 100 MG, QD
     Route: 048
     Dates: start: 20151207, end: 20151210

REACTIONS (1)
  - Rectal haemorrhage [Recovered/Resolved]

NARRATIVE: CASE EVENT DATE: 20151209
